FAERS Safety Report 10184085 (Version 1)
Quarter: 2014Q2

REPORT INFORMATION
  Report Type: Spontaneous
  Country: US (occurrence: US)
  Receive Date: 20140520
  Receipt Date: 20140520
  Transmission Date: 20141212
  Serious: No
  Sender: FDA-Public Use
  Company Number: US-ASTRAZENECA-2013SE86807

PATIENT
  Age: 86 Year
  Sex: Female
  Weight: 56.2 kg

DRUGS (5)
  1. BUDESONIDE [Suspect]
     Indication: COLITIS MICROSCOPIC
     Route: 048
     Dates: start: 200808
  2. BUDESONIDE [Suspect]
     Indication: COLITIS MICROSCOPIC
     Route: 048
     Dates: start: 201108
  3. LOSARTAN [Concomitant]
     Indication: BLOOD PRESSURE ABNORMAL
     Dosage: 50MG
  4. THYOXINE [Concomitant]
     Indication: THYROID DISORDER
     Dosage: UNK
  5. LEVO [Concomitant]
     Indication: BLOOD CHOLESTEROL ABNORMAL
     Dosage: UNK

REACTIONS (9)
  - Blood pressure abnormal [Unknown]
  - Diarrhoea [Unknown]
  - Hypertension [Unknown]
  - Hypotension [Unknown]
  - Malaise [Unknown]
  - Reaction to drug excipients [Unknown]
  - Weight decreased [Unknown]
  - Off label use [Unknown]
  - Off label use [Unknown]
